FAERS Safety Report 12184495 (Version 1)
Quarter: 2016Q1

REPORT INFORMATION
  Report Type: Spontaneous
  Country: US (occurrence: US)
  Receive Date: 20160316
  Receipt Date: 20160316
  Transmission Date: 20160526
  Serious: Yes (Life-Threatening, Hospitalization, Other)
  Sender: FDA-Public Use
  Company Number: US-ASTRAZENECA-2009BM00463

PATIENT
  Sex: Female
  Weight: 160 kg

DRUGS (11)
  1. METOPROLOL TARTRATE. [Suspect]
     Active Substance: METOPROLOL TARTRATE
     Dosage: 100MG-PRECONCEPTION,0,14,35,38WEEK INTRAUTERINE PERIOD  50MG-22 AND 29 WEEK
     Route: 064
  2. ROSIGLITAZONE [Suspect]
     Active Substance: ROSIGLITAZONE
     Dosage: UNK
     Route: 064
  3. INSULIN GLARGINE [Suspect]
     Active Substance: INSULIN GLARGINE
     Dosage: 34UNITS-0WEEK OF INTRAUTERINE PERIOD  38-14 WEEK  113-27 WEEK  220-29 WEEK  247-35 WEEK  257-38 WEEK
     Route: 064
  4. EXENATIDE [Suspect]
     Active Substance: EXENATIDE
     Dosage: UNK
     Route: 064
  5. MONOPRIL [Suspect]
     Active Substance: FOSINOPRIL SODIUM
     Dosage: UNK
     Route: 064
  6. ATORVASTATIN [Suspect]
     Active Substance: ATORVASTATIN
     Dosage: UNK
     Route: 064
  7. METFORMIN HYDROCHLORIDE. [Suspect]
     Active Substance: METFORMIN HYDROCHLORIDE
     Route: 064
  8. DILTIAZEM [Concomitant]
     Active Substance: DILTIAZEM
     Dosage: UNK
     Route: 064
  9. ASPIRIN. [Suspect]
     Active Substance: ASPIRIN
     Dosage: UNK
     Route: 064
  10. METOPROLOL TARTRATE. [Suspect]
     Active Substance: METOPROLOL TARTRATE
     Dosage: 50MG-22 AND 29 WEEK
     Route: 064
  11. NITROFURANTOIN. [Suspect]
     Active Substance: NITROFURANTOIN
     Dosage: UNK
     Route: 064

REACTIONS (2)
  - Encephalopathy [Unknown]
  - Escherichia sepsis [Unknown]
